FAERS Safety Report 15715968 (Version 1)
Quarter: 2018Q4

REPORT INFORMATION
  Report Type: Spontaneous
  Country: US (occurrence: US)
  Receive Date: 20181213
  Receipt Date: 20181213
  Transmission Date: 20190205
  Serious: Yes (Other)
  Sender: FDA-Public Use
  Company Number: US-BIOGEN-2018BI00669282

PATIENT
  Sex: Female

DRUGS (2)
  1. TYSABRI [Suspect]
     Active Substance: NATALIZUMAB
     Route: 065
     Dates: start: 20171107
  2. TYSABRI [Suspect]
     Active Substance: NATALIZUMAB
     Indication: MULTIPLE SCLEROSIS
     Route: 065
     Dates: start: 20130905, end: 20170420

REACTIONS (15)
  - Amnesia [Unknown]
  - Skin burning sensation [Unknown]
  - Fall [Recovered/Resolved]
  - Head discomfort [Unknown]
  - Confusional state [Unknown]
  - Muscle spasticity [Unknown]
  - Rhinorrhoea [Unknown]
  - Gastric ulcer [Unknown]
  - Nightmare [Unknown]
  - Concussion [Unknown]
  - Muscular weakness [Unknown]
  - Blindness transient [Recovered/Resolved]
  - Wrist fracture [Unknown]
  - Night sweats [Unknown]
  - Pain in extremity [Unknown]
